FAERS Safety Report 7313365-8 (Version None)
Quarter: 2011Q1

REPORT INFORMATION
  Report Type: 
  Country: None (occurrence: None)
  Receive Date: 20110225
  Receipt Date: 20100204
  Transmission Date: 20110831
  Serious: No
  Sender: FDA-Public Use
  Company Number: US-MYLANLABS-2010S1000311

PATIENT
  Age: 64 Year
  Sex: Female

DRUGS (6)
  1. CLONIDINE [Suspect]
     Indication: BLOOD PRESSURE INCREASED
  2. ASPIRIN [Concomitant]
  3. BENADRYL [Concomitant]
  4. BENAZEPRIL [Concomitant]
  5. HYDROCHLOROTHIAZIDE [Suspect]
     Indication: BLOOD PRESSURE INCREASED
     Route: 048
     Dates: start: 20091211, end: 20100101
  6. ATENOLOL [Concomitant]

REACTIONS (2)
  - RASH PRURITIC [None]
  - REACTION TO DRUG EXCIPIENTS [None]
